FAERS Safety Report 6717484-6 (Version None)
Quarter: 2010Q2

REPORT INFORMATION
  Report Type: 
  Country: None (occurrence: None)
  Receive Date: 20100510
  Receipt Date: 20100505
  Transmission Date: 20101027
  Serious: Yes (Life-Threatening, Other)
  Sender: FDA-Public Use
  Company Number: EG-ROCHE-701634

PATIENT
  Sex: Female
  Weight: 82 kg

DRUGS (5)
  1. TOCILIZUMAB [Suspect]
     Indication: RHEUMATOID ARTHRITIS
     Route: 042
     Dates: start: 20100412
  2. METHOTREXATE [Suspect]
     Indication: RHEUMATOID ARTHRITIS
     Dosage: PERMANENTLY DISCONTINUED.
     Route: 030
     Dates: start: 20100415, end: 20100505
  3. ATORVASTATIN [Concomitant]
     Dates: start: 20100328
  4. RANITIDINE [Concomitant]
     Dates: start: 20100313
  5. ANTIHISTAMINES [Concomitant]
     Dates: start: 20100305

REACTIONS (4)
  - ARTHRALGIA [None]
  - DIARRHOEA [None]
  - FACE OEDEMA [None]
  - OEDEMA PERIPHERAL [None]
